FAERS Safety Report 7293301-3 (Version None)
Quarter: 2011Q1

REPORT INFORMATION
  Report Type: 
  Country: None (occurrence: None)
  Receive Date: 20110210
  Receipt Date: 20110210
  Transmission Date: 20110831
  Serious: Yes (Death)
  Sender: FDA-Public Use
  Company Number: None

PATIENT
  Age: 78 Year
  Sex: Male
  Weight: 74.8435 kg

DRUGS (2)
  1. DABIGATRAN [Suspect]
     Indication: ATRIAL FIBRILLATION
     Dosage: 1 - 2 MONTHS
  2. COUMADIN [Suspect]
     Dosage: 2-3 YEARS

REACTIONS (5)
  - HAEMORRHAGE [None]
  - BRAIN OEDEMA [None]
  - CONTUSION [None]
  - EMBOLIC STROKE [None]
  - BRAIN DEATH [None]
